FAERS Safety Report 9128955 (Version 1)
Quarter: 2013Q1

REPORT INFORMATION
  Report Type: Spontaneous
  Country: PR (occurrence: PR)
  Receive Date: 20130125
  Receipt Date: 20130125
  Transmission Date: 20140127
  Serious: Yes (Hospitalization, Other)
  Sender: FDA-Public Use
  Company Number: PR-GLAXOSMITHKLINE-A1008699A

PATIENT
  Age: 48 Year
  Sex: Female

DRUGS (3)
  1. BENLYSTA [Suspect]
     Indication: SYSTEMIC LUPUS ERYTHEMATOSUS
     Dosage: 10MGK EVERY TWO WEEKS
     Route: 042
     Dates: start: 20121206
  2. PREDNISONE [Concomitant]
  3. PLAQUENIL [Concomitant]

REACTIONS (3)
  - Gastritis [Recovering/Resolving]
  - Colitis [Recovering/Resolving]
  - Abdominal pain upper [Recovering/Resolving]
